FAERS Safety Report 15666140 (Version 2)
Quarter: 2019Q1

REPORT INFORMATION
  Report Type: Spontaneous
  Country: JP (occurrence: JP)
  Receive Date: 20181128
  Receipt Date: 20190108
  Transmission Date: 20190417
  Serious: Yes (Hospitalization, Other)
  Sender: FDA-Public Use
  Company Number: PHHY2018JP167799

PATIENT
  Age: 92 Year
  Sex: Female

DRUGS (2)
  1. RIVASTACH [Suspect]
     Active Substance: RIVASTIGMINE
     Indication: DEMENTIA ALZHEIMER^S TYPE
     Dosage: 9.5 MG, QD PATCH 10 (CM2)
     Route: 062
     Dates: end: 20181116
  2. RIVASTACH [Suspect]
     Active Substance: RIVASTIGMINE
     Dosage: 17.4 MG, QD PATCH 20 (CM2)
     Route: 062
     Dates: start: 20181117, end: 20181120

REACTIONS (3)
  - Wrong technique in product usage process [Unknown]
  - Overdose [Unknown]
  - Cerebral infarction [Unknown]

NARRATIVE: CASE EVENT DATE: 20181117
